FAERS Safety Report 4445004-8 (Version None)
Quarter: 2004Q3

REPORT INFORMATION
  Report Type: 
  Country: None (occurrence: None)
  Receive Date: 20040907
  Receipt Date: 20040823
  Transmission Date: 20050211
  Serious: No
  Sender: FDA-Public Use
  Company Number: 2004CG01418

PATIENT
  Age: 35 Year
  Sex: Female
  Weight: 63 kg

DRUGS (2)
  1. NAROPIN [Suspect]
     Indication: EPIDURAL ANAESTHESIA
     Dosage: INFUSION OF 6 ML FOLLOWED BY 10  ML PER HOUR
     Dates: start: 20020212, end: 20020212
  2. XYLOCAINE [Concomitant]

REACTIONS (7)
  - ANAESTHETIC COMPLICATION [None]
  - PARESIS [None]
  - POST PROCEDURAL COMPLICATION [None]
  - RADICULAR SYNDROME [None]
  - RADICULOPATHY [None]
  - REFUSAL OF TREATMENT BY PATIENT [None]
  - SENSORY LOSS [None]
